FAERS Safety Report 15456849 (Version 1)
Quarter: 2018Q3

REPORT INFORMATION
  Report Type: Spontaneous
  Country: US (occurrence: US)
  Receive Date: 20180928
  Receipt Date: 20180928
  Transmission Date: 20181010
  Serious: No
  Sender: FDA-Public Use
  Company Number: None

PATIENT
  Age: 47 Year
  Sex: Female

DRUGS (4)
  1. OTREXUP [Suspect]
     Active Substance: METHOTREXATE
     Indication: CONNECTIVE TISSUE DISORDER
     Route: 058
     Dates: start: 201804
  2. OTREXUP [Suspect]
     Active Substance: METHOTREXATE
     Indication: CONNECTIVE TISSUE DISORDER
  3. OTREXUP [Suspect]
     Active Substance: METHOTREXATE
     Indication: FIBROSIS
  4. OTREXUP [Suspect]
     Active Substance: METHOTREXATE
     Indication: FIBROSIS
     Route: 058
     Dates: start: 201804

REACTIONS (1)
  - Inflammation [None]
